FAERS Safety Report 8588913 (Version 3)
Quarter: 2013Q3

REPORT INFORMATION
  Report Type: Report from Study
  Country: GB (occurrence: GB)
  Receive Date: 20120531
  Receipt Date: 20130717
  Transmission Date: 20140515
  Serious: Yes (Hospitalization)
  Sender: FDA-Public Use
  Company Number: GB-UCBSA-058159

PATIENT
  Age: 57 Year
  Sex: Female

DRUGS (11)
  1. CERTOLIZUMAB [Suspect]
     Indication: RHEUMATOID ARTHRITIS
     Dosage: DOSE: 200 MG
     Route: 058
     Dates: start: 20110905, end: 20111220
  2. OMEPRAZOLE [Concomitant]
     Dosage: DAILY DOSE: 20 MG
  3. SIMVASTATIN [Concomitant]
     Dosage: AT NIGHT
  4. CETIRIZINE [Concomitant]
     Dosage: DAILY DOSE: 10 MG
  5. HYDROXYZINE [Concomitant]
     Dosage: AT NIGHT
  6. VENLAFAXINE [Concomitant]
     Dosage: DOSE: 125 MG AT MORNING (MANE) AND 225 MG AT NIGHT (NOCTE)
  7. METHOTREXATE [Concomitant]
     Indication: RHEUMATOID ARTHRITIS
     Dates: end: 20120229
  8. PRIADEL MR [Concomitant]
     Dosage: AT NIGHT
  9. ASPIRIN [Concomitant]
     Dosage: DAILY DOSE: 75 MG
  10. LEVEMIR [Concomitant]
     Dosage: DOSE: 12 UNITS AT AM/ 18 UNITS AT PM
  11. NOVORAPID [Concomitant]
     Dosage: DOSE: UNKNOWN, 4 TIMES A DAY AS PER BLOOD SUGARS

REACTIONS (2)
  - Breast cancer [Not Recovered/Not Resolved]
  - Erythrodermic psoriasis [Recovered/Resolved]
